FAERS Safety Report 8947249 (Version 8)
Quarter: 2015Q1

REPORT INFORMATION
  Report Type: Report from Study
  Country: FR (occurrence: FR)
  Receive Date: 20121205
  Receipt Date: 20150323
  Transmission Date: 20150721
  Serious: Yes (Hospitalization, Other)
  Sender: FDA-Public Use
  Company Number: FR-PFIZER INC-2012231792

PATIENT
  Age: 4 Year
  Sex: Female
  Weight: 22 kg

DRUGS (6)
  1. CRIZOTINIB [Suspect]
     Active Substance: CRIZOTINIB
     Dosage: 230 MG/M2, 2X/DAY (160 MG MORNING AND EVENING)
     Route: 048
     Dates: start: 20120907
  2. DEXAMETHASONE. [Suspect]
     Active Substance: DEXAMETHASONE
     Indication: LYMPHOMA
  3. CRIZOTINIB [Suspect]
     Active Substance: CRIZOTINIB
     Indication: ANAPLASTIC LARGE-CELL LYMPHOMA
     Dosage: 125 MG, 2X/DAY
     Route: 048
     Dates: start: 20120805
  4. BACTRIM [Concomitant]
     Active Substance: SULFAMETHOXAZOLE\TRIMETHOPRIM
     Dosage: 400 MG, 3 TIMES PER WEEK
  5. CRIZOTINIB [Suspect]
     Active Substance: CRIZOTINIB
     Dosage: 165 MG/M2, 2X/DAY
     Dates: end: 201410
  6. CRIZOTINIB [Suspect]
     Active Substance: CRIZOTINIB
     Dosage: 280 MG/M2, 2X/DAY
     Route: 048
     Dates: start: 20120807

REACTIONS (17)
  - Tibia fracture [Recovered/Resolved]
  - Pruritus [Recovered/Resolved]
  - Transaminases increased [Unknown]
  - Neutropenia [Recovered/Resolved]
  - Xerosis [Recovered/Resolved]
  - Groin pain [Unknown]
  - Rash [Recovered/Resolved]
  - Anaplastic large-cell lymphoma [Recovered/Resolved]
  - Femoral neck fracture [Recovered/Resolved]
  - Pain in extremity [Recovered/Resolved]
  - Dry eye [Not Recovered/Not Resolved]
  - Performance status decreased [Unknown]
  - Gait disturbance [Recovered/Resolved]
  - Disease recurrence [Recovered/Resolved]
  - Keratosis pilaris [Recovered/Resolved]
  - Transaminases increased [Unknown]
  - Transaminases increased [Not Recovered/Not Resolved]

NARRATIVE: CASE EVENT DATE: 20120816
